FAERS Safety Report 5994033-1 (Version None)
Quarter: 2008Q4

REPORT INFORMATION
  Report Type: 
  Country: None (occurrence: None)
  Receive Date: 20081212
  Receipt Date: 20080903
  Transmission Date: 20090506
  Serious: No
  Sender: FDA-Public Use
  Company Number: US-ABBOTT-08P-163-0472375-00

PATIENT
  Sex: Female
  Weight: 78.542 kg

DRUGS (3)
  1. HUMIRA [Suspect]
     Indication: ANKYLOSING SPONDYLITIS
     Route: 050
     Dates: start: 20080101
  2. AZATHIOPRINE [Concomitant]
     Indication: COLITIS ULCERATIVE
     Dosage: 50 MG UNIT DOSE
     Route: 048
     Dates: start: 20071001
  3. AZATHIOPRINE [Concomitant]
     Indication: DIVERTICULITIS

REACTIONS (1)
  - ACCIDENTAL EXPOSURE [None]
